FAERS Safety Report 21381922 (Version 1)
Quarter: 2022Q3

REPORT INFORMATION
  Report Type: Spontaneous
  Country: DE (occurrence: DE)
  Receive Date: 20220927
  Receipt Date: 20220927
  Transmission Date: 20221027
  Serious: Yes (Hospitalization)
  Sender: FDA-Public Use
  Company Number: DE-ADRED-07474-02

PATIENT
  Age: 82 Year
  Sex: Female
  Weight: 75.7 kg

DRUGS (11)
  1. CARBOPLATIN [Suspect]
     Active Substance: CARBOPLATIN
     Indication: Product used for unknown indication
     Dosage: ROA-20045000
     Route: 042
  2. ETOPOSIDE [Suspect]
     Active Substance: ETOPOSIDE
     Indication: Product used for unknown indication
     Dosage: ROA-20045000
     Route: 042
  3. Bayotensin mite [Concomitant]
     Indication: Product used for unknown indication
     Dosage: 10 MG, 0-0-1-0?ROA-20053000
     Route: 048
  4. METFORMIN [Concomitant]
     Active Substance: METFORMIN HYDROCHLORIDE
     Indication: Product used for unknown indication
     Dosage: 1000 MG, 0-0-1-0?ROA-20053000
     Route: 048
  5. Velmetia 50mg/1000mg [Concomitant]
     Indication: Product used for unknown indication
     Dosage: 1000|50 MG, 1-0-0-0?ROA-20053000
     Route: 048
  6. ASPIRIN [Concomitant]
     Active Substance: ASPIRIN
     Indication: Product used for unknown indication
     Dosage: 100 MG, 0-1-0-0?ROA-20053000
     Route: 048
  7. LIPEGFILGRASTIM [Concomitant]
     Active Substance: LIPEGFILGRASTIM
     Indication: Product used for unknown indication
     Dosage: ROA-20045000
     Route: 042
  8. METOPROLOL [Concomitant]
     Active Substance: METOPROLOL
     Indication: Product used for unknown indication
     Dosage: 100 MG, 1-0-1-0?ROA-20053000
     Route: 048
  9. HYDROCHLOROTHIAZIDE\RAMIPRIL [Concomitant]
     Active Substance: HYDROCHLOROTHIAZIDE\RAMIPRIL
     Indication: Product used for unknown indication
     Dosage: 25|5 MG, 1-0-0-0?ROA-20053000
     Route: 048
  10. Humulin Basal Kwikpen 300I.U. 100IU/ml PEN [Concomitant]
     Indication: Product used for unknown indication
     Dosage: 100 IE/ML, AS REQUIRED?ROA-20066000
     Route: 058
  11. Vitamin B12 AAA 1000 Microgram [Concomitant]
     Indication: Product used for unknown indication
     Dosage: 1000 ?, 1-0-0-0?ROA-20053000
     Route: 048

REACTIONS (5)
  - Night sweats [Unknown]
  - Thrombocytopenia [Unknown]
  - Anaemia [Unknown]
  - Dysuria [Unknown]
  - Fatigue [Unknown]
